FAERS Safety Report 7792155-6 (Version None)
Quarter: 2011Q4

REPORT INFORMATION
  Report Type: 
  Country: None (occurrence: None)
  Receive Date: 20111003
  Receipt Date: 20111003
  Transmission Date: 20120403
  Serious: Yes (Life-Threatening, Hospitalization)
  Sender: FDA-Public Use
  Company Number: None

PATIENT
  Age: 46 Year
  Sex: Male
  Weight: 108.4 kg

DRUGS (1)
  1. HEPARIN SODIUM [Suspect]
     Indication: CHEST PAIN
     Dosage: 1600 UNITS/HOUR
     Route: 041
     Dates: start: 20110914, end: 20110914

REACTIONS (1)
  - HEPARIN-INDUCED THROMBOCYTOPENIA [None]
